FAERS Safety Report 12848587 (Version 1)
Quarter: 2016Q4

REPORT INFORMATION
  Report Type: Spontaneous
  Country: US (occurrence: US)
  Receive Date: 20161014
  Receipt Date: 20161014
  Transmission Date: 20170207
  Serious: No
  Sender: FDA-Public Use
  Company Number: US-JNJFOC-20160824405

PATIENT
  Age: 69 Year
  Sex: Female
  Weight: 108.41 kg

DRUGS (1)
  1. TYLENOL EXTRA STRENGTH [Suspect]
     Active Substance: ACETAMINOPHEN
     Indication: ARTHRITIS
     Route: 048
     Dates: start: 20160825

REACTIONS (2)
  - Wrong drug administered [Unknown]
  - Underdose [Unknown]

NARRATIVE: CASE EVENT DATE: 20160825
